FAERS Safety Report 7295087-5 (Version None)
Quarter: 2011Q1

REPORT INFORMATION
  Report Type: 
  Country: None (occurrence: None)
  Receive Date: 20110203
  Receipt Date: 20110118
  Transmission Date: 20110831
  Serious: Yes (Death)
  Sender: FDA-Public Use
  Company Number: B0694803A

PATIENT
  Age: 51 Year
  Sex: Male

DRUGS (4)
  1. METHADONE HCL [Suspect]
     Dosage: /ORAL
     Route: 048
  2. MORPHINE [Suspect]
     Dosage: /ORAL
     Route: 048
  3. PAROXETINE HYDROCHLORIDE [Suspect]
     Dosage: /ORAL
     Route: 048
  4. HYDROCODONE + PARACETAMOL (FORMULATION UNKNOWN) (GENERIC) (HYDROCODONE [Suspect]
     Dosage: /ORAL
     Route: 048

REACTIONS (1)
  - COMPLETED SUICIDE [None]
